FAERS Safety Report 8825468 (Version 2)
Quarter: 2014Q2

REPORT INFORMATION
  Report Type: Report from Study
  Country: NL (occurrence: NL)
  Receive Date: 20121004
  Receipt Date: 20131017
  Transmission Date: 20141212
  Serious: Yes (Hospitalization)
  Sender: FDA-Public Use
  Company Number: NL-PFIZER INC-2012240003

PATIENT
  Sex: 0

DRUGS (1)
  1. CYTARABINE [Suspect]
     Indication: NEOPLASM MALIGNANT
     Dosage: UNK

REACTIONS (3)
  - Petechiae [Unknown]
  - Thrombocytopenia [Unknown]
  - Off label use [Unknown]
